FAERS Safety Report 4498995-3 (Version None)
Quarter: 2004Q4

REPORT INFORMATION
  Report Type: 
  Country: None (occurrence: None)
  Receive Date: 20041108
  Receipt Date: 20041015
  Transmission Date: 20050328
  Serious: Yes (Hospitalization)
  Sender: FDA-Public Use
  Company Number: A01200405240

PATIENT
  Age: 65 Year
  Sex: Male

DRUGS (9)
  1. PLAVIX [Suspect]
     Indication: CORONARY ARTERIAL STENT INSERTION
     Dosage: 75 MG OD ORAL
     Route: 048
     Dates: start: 20030503, end: 20031103
  2. PLAVIX [Suspect]
     Indication: THROMBOSIS PROPHYLAXIS
     Dosage: 75 MG OD ORAL
     Route: 048
     Dates: start: 20030503, end: 20031103
  3. ACCUPRIL [Concomitant]
  4. SELEKTINE (PRAVASTATIN SODIUM) [Concomitant]
  5. ASCAL (ACETYLSALICYLATE CALCIUM) [Concomitant]
  6. METOPROLOL TARTRATE [Concomitant]
  7. PANTOZOL (PANTOPRAZOLE SODIUM) [Concomitant]
  8. ISORDIL [Concomitant]
  9. PROMOCARD (ISOSORBIDE MONONITRATE) [Concomitant]

REACTIONS (1)
  - HAEMOLYTIC ANAEMIA [None]
